FAERS Safety Report 7524885-5 (Version None)
Quarter: 2011Q2

REPORT INFORMATION
  Report Type: 
  Country: None (occurrence: None)
  Receive Date: 20110526
  Receipt Date: 20110523
  Transmission Date: 20111010
  Serious: Yes (Other)
  Sender: FDA-Public Use
  Company Number: 201110598

PATIENT
  Sex: Female

DRUGS (1)
  1. LIORESAL [Suspect]
     Indication: MUSCLE SPASTICITY
     Dosage: DAILY, INTRATHECAL
     Route: 037

REACTIONS (6)
  - SERRATIA INFECTION [None]
  - OPEN WOUND [None]
  - CULTURE POSITIVE [None]
  - ERYTHEMA [None]
  - DEVICE RELATED INFECTION [None]
  - WOUND SECRETION [None]
